FAERS Safety Report 9344807 (Version 2)
Quarter: 2013Q3

REPORT INFORMATION
  Report Type: Spontaneous
  Country: FR (occurrence: FR)
  Receive Date: 20130612
  Receipt Date: 20130816
  Transmission Date: 20140515
  Serious: Yes (Death, Hospitalization, Other)
  Sender: FDA-Public Use
  Company Number: FR-TEVA-411510ISR

PATIENT
  Age: 87 Year
  Sex: Female
  Weight: 69 kg

DRUGS (8)
  1. FUROSEMIDE TEVA 40 MG, SCORED TABLET [Suspect]
     Indication: OEDEMA PERIPHERAL
     Dosage: 40 MILLIGRAM DAILY;
     Route: 048
     Dates: start: 20130519, end: 20130530
  2. CARDENTIEL 2.5 [Concomitant]
  3. KENZEN 8 [Concomitant]
  4. REMINYL 24 [Concomitant]
     Indication: DEMENTIA ALZHEIMER^S TYPE
  5. LEVOTHYROX 50 [Concomitant]
  6. PARIET 10 [Concomitant]
  7. EBIXA [Concomitant]
     Indication: DEMENTIA ALZHEIMER^S TYPE
  8. LOXEN [Concomitant]
     Indication: BLOOD PRESSURE
     Dosage: IF BP UP TO 18

REACTIONS (8)
  - Cardiac disorder [Fatal]
  - Pulmonary embolism [Fatal]
  - Syncope [Unknown]
  - Loss of consciousness [Unknown]
  - Asthenia [Unknown]
  - Oedema peripheral [Unknown]
  - Anuria [Unknown]
  - Somnolence [Unknown]
